FAERS Safety Report 7859943-9 (Version None)
Quarter: 2011Q4

REPORT INFORMATION
  Report Type: 
  Country: None (occurrence: None)
  Receive Date: 20111018
  Receipt Date: 20111004
  Transmission Date: 20120403
  Serious: Yes (Hospitalization)
  Sender: FDA-Public Use
  Company Number: US-145253

PATIENT
  Sex: Male
  Weight: 79.4 kg

DRUGS (17)
  1. RHO(D) IMMUNE GLOBULIN NOS [Suspect]
     Indication: IDIOPATHIC THROMBOCYTOPENIC PURPURA
     Dosage: (75 UG/KG TOTAL INTRAVENOUS (NOT OTHERWISE SPECIFIED)
     Route: 042
     Dates: start: 20111003, end: 20111003
  2. SPIRIVA [Concomitant]
  3. COLACE [Concomitant]
  4. PRADAXA [Concomitant]
  5. FLONASE [Concomitant]
  6. LEXAPRO [Concomitant]
  7. ALBUTEROL [Concomitant]
  8. PRILOSEC [Concomitant]
  9. CALCIUM [Concomitant]
  10. FOLIC ACID [Concomitant]
  11. ADVAIR DISKUS 100/50 [Concomitant]
  12. PREDNISONE [Concomitant]
  13. MIRALAX [Concomitant]
  14. ZYRTEC [Concomitant]
  15. ZOFRAN [Concomitant]
  16. XANAX [Concomitant]
  17. PROVENTIL [Concomitant]

REACTIONS (25)
  - SINUS TACHYCARDIA [None]
  - AMMONIA INCREASED [None]
  - ANTIBODY TEST POSITIVE [None]
  - BACK PAIN [None]
  - ABDOMINAL DISTENSION [None]
  - BODY TEMPERATURE INCREASED [None]
  - RESPIRATORY DISTRESS [None]
  - BUNDLE BRANCH BLOCK LEFT [None]
  - ACTIVATED PARTIAL THROMBOPLASTIN TIME PROLONGED [None]
  - LIVER INJURY [None]
  - RENAL FAILURE ACUTE [None]
  - NAUSEA [None]
  - BLOOD PRESSURE INCREASED [None]
  - WHEEZING [None]
  - FIBRIN D DIMER INCREASED [None]
  - HAEMOLYTIC ANAEMIA [None]
  - LIVEDO RETICULARIS [None]
  - WHITE BLOOD CELL COUNT INCREASED [None]
  - BLOOD POTASSIUM INCREASED [None]
  - COAGULOPATHY [None]
  - TOXICITY TO VARIOUS AGENTS [None]
  - HEPATITIS ACUTE [None]
  - ABDOMINAL PAIN [None]
  - PLATELET COUNT DECREASED [None]
  - PROTHROMBIN TIME PROLONGED [None]
